FAERS Safety Report 7411760-X (Version None)
Quarter: 2011Q2

REPORT INFORMATION
  Report Type: 
  Country: None (occurrence: None)
  Receive Date: 20110413
  Receipt Date: 20101222
  Transmission Date: 20111010
  Serious: No
  Sender: FDA-Public Use
  Company Number: US-BRISTOL-MYERS SQUIBB COMPANY-15457492

PATIENT
  Age: 78 Year
  Sex: Male
  Weight: 80 kg

DRUGS (1)
  1. ERBITUX [Suspect]
     Dosage: 1 DF=4 DOSES

REACTIONS (8)
  - SKIN FISSURES [None]
  - VOMITING [None]
  - WEIGHT DECREASED [None]
  - AGEUSIA [None]
  - DRY MOUTH [None]
  - DYSPHONIA [None]
  - RASH [None]
  - CHILLS [None]
